FAERS Safety Report 5778819-4 (Version None)
Quarter: 2008Q2

REPORT INFORMATION
  Report Type: 
  Country: None (occurrence: None)
  Receive Date: 20080619
  Receipt Date: 20080616
  Transmission Date: 20081010
  Serious: Yes (Other)
  Sender: FDA-Public Use
  Company Number: PHEH2007US09697

PATIENT
  Sex: Female
  Weight: 71.201 kg

DRUGS (12)
  1. VIVELLE [Suspect]
     Indication: MENOPAUSE
     Dosage: 0.05 MG/DAY, UNK
     Route: 062
     Dates: start: 20000601, end: 20020201
  2. VIVELLE-DOT [Suspect]
     Dosage: 0.5 MG, UNK
     Route: 062
     Dates: start: 19990101, end: 20020217
  3. PREMARIN [Suspect]
     Indication: MENOPAUSE
     Dosage: 0.625 MG, UNK
     Route: 048
     Dates: start: 19940701, end: 19980301
  4. PROVERA [Suspect]
     Indication: MENOPAUSE
     Dosage: 10 MG, UNK
     Route: 048
     Dates: start: 19940701, end: 19970101
  5. ESTRACE [Suspect]
     Indication: MENOPAUSE
     Dosage: 1 MG, UNK
     Dates: start: 19980401, end: 19981201
  6. MEDROXYPROGESTERONE [Suspect]
     Indication: MENOPAUSE
     Dosage: 5 MG, UNK
     Dates: start: 19940101, end: 19980101
  7. PROMETRIUM [Suspect]
     Indication: MENOPAUSE
     Dosage: 100 MG, UNK
     Dates: start: 19991101, end: 20020216
  8. CLIMARA [Suspect]
     Dosage: 0.05 MG, UNK
     Route: 062
     Dates: start: 19990719, end: 20000201
  9. ELMIRON [Concomitant]
     Dosage: 100 MG, UNK
     Route: 048
  10. VIOXX [Concomitant]
     Dosage: 25 MG, UNK
     Route: 048
  11. HERBAL PREPARATION [Concomitant]
  12. VITAMINS [Concomitant]

REACTIONS (26)
  - ACCIDENT [None]
  - BACK PAIN [None]
  - BIOPSY BREAST ABNORMAL [None]
  - BIOPSY ENDOMETRIUM ABNORMAL [None]
  - BLADDER DISORDER [None]
  - BREAST CANCER [None]
  - BREAST LUMP REMOVAL [None]
  - COLON POLYPECTOMY [None]
  - CONSTIPATION [None]
  - CYSTOCELE [None]
  - EYE LASER SURGERY [None]
  - HAEMORRHOIDS [None]
  - HERPES ZOSTER [None]
  - INTERVERTEBRAL DISC DEGENERATION [None]
  - NECK PAIN [None]
  - OESOPHAGEAL STENOSIS [None]
  - OESTROGEN RECEPTOR ASSAY POSITIVE [None]
  - ORAL HERPES [None]
  - PELVIC FRACTURE [None]
  - RADICULITIS LUMBOSACRAL [None]
  - RECTOCELE [None]
  - ROAD TRAFFIC ACCIDENT [None]
  - SMEAR CERVIX ABNORMAL [None]
  - URINARY INCONTINENCE [None]
  - UTERINE PROLAPSE [None]
  - WHITE BLOOD CELL COUNT DECREASED [None]
